FAERS Safety Report 7466037-3 (Version None)
Quarter: 2011Q2

REPORT INFORMATION
  Report Type: 
  Country: None (occurrence: None)
  Receive Date: 20110509
  Receipt Date: 20100610
  Transmission Date: 20111010
  Serious: Yes (Other)
  Sender: FDA-Public Use
  Company Number: US-ALEXION-A201000616

PATIENT
  Sex: Female

DRUGS (11)
  1. XANAX [Concomitant]
     Dosage: UNK
  2. MAGNESIUM OXIDE [Concomitant]
     Dosage: UNK
  3. CYCLOSPORINE [Concomitant]
     Dosage: UNK
  4. OMEPRAZOLE [Concomitant]
     Dosage: UNK
  5. SOLIRIS [Suspect]
     Indication: PAROXYSMAL NOCTURNAL HAEMOGLOBINURIA
     Dosage: UNK, QMONTH
     Route: 042
     Dates: start: 20090601
  6. HYDROCODONE BITARTRATE [Concomitant]
     Dosage: UNK
  7. SINGULAIR [Concomitant]
     Dosage: UNK
  8. NEULASTA [Concomitant]
     Dosage: UNK
  9. FOLIC ACID [Concomitant]
     Dosage: UNK
  10. SYMBICORT [Concomitant]
     Dosage: UNK
  11. KLONOPIN [Concomitant]
     Dosage: UNK

REACTIONS (2)
  - PLATELET COUNT DECREASED [None]
  - MALAISE [None]
